FAERS Safety Report 4920710-7 (Version None)
Quarter: 2006Q1

REPORT INFORMATION
  Report Type: 
  Country: None (occurrence: None)
  Receive Date: 20060217
  Receipt Date: 20060208
  Transmission Date: 20060701
  Serious: Yes (Other)
  Sender: FDA-Public Use
  Company Number: 200610751BWH

PATIENT
  Age: 64 Year
  Sex: 0

DRUGS (8)
  1. NEXAVAR [Suspect]
     Dosage: 400 MG BID ORAL
     Route: 048
     Dates: start: 20060110
  2. VERAPAMIL [Concomitant]
  3. ZOLOFT [Concomitant]
  4. LORAZEPAM [Concomitant]
  5. HYDROCHLOROTHIAZIDE [Concomitant]
  6. DECADRON SRC [Concomitant]
  7. MEGACE [Concomitant]
  8. MULTI-VITAMIN [Concomitant]

REACTIONS (2)
  - BLOOD PRESSURE INCREASED [None]
  - THROMBOCYTOPENIA [None]
